FAERS Safety Report 9691113 (Version 2)
Quarter: 2013Q4

REPORT INFORMATION
  Report Type: Spontaneous
  Country: US (occurrence: US)
  Receive Date: 20131115
  Receipt Date: 20131115
  Transmission Date: 20140711
  Serious: Yes (Hospitalization)
  Sender: FDA-Public Use
  Company Number: US-BRISTOL-MYERS SQUIBB COMPANY-19595552

PATIENT
  Age: 81 Year
  Sex: Female
  Weight: 166 kg

DRUGS (8)
  1. ELIQUIS [Suspect]
     Indication: ATRIAL FIBRILLATION
     Dates: start: 20131001, end: 20131008
  2. ELIQUIS [Suspect]
     Indication: CEREBROVASCULAR ACCIDENT PROPHYLAXIS
     Dates: start: 20131001, end: 20131008
  3. APIDRA [Concomitant]
     Dosage: 1DF = 6UNITS
  4. LANTUS [Concomitant]
     Dosage: 1DF = 35UNITS
  5. ATORVASTATIN [Concomitant]
  6. MECLIZINE [Concomitant]
  7. TOPROL XL [Concomitant]
  8. VITAMIN D3 [Concomitant]
     Dosage: 1DF = 1000 UNITS

REACTIONS (5)
  - Gastric ulcer haemorrhage [Recovered/Resolved]
  - Haematemesis [Unknown]
  - Pneumonia [Unknown]
  - Anaemia [Unknown]
  - Depression [Unknown]
